FAERS Safety Report 20673659 (Version 1)
Quarter: 2022Q2

REPORT INFORMATION
  Report Type: Spontaneous
  Country: GB (occurrence: GB)
  Receive Date: 20220405
  Receipt Date: 20220405
  Transmission Date: 20220720
  Serious: Yes (Hospitalization, Disabling)
  Sender: FDA-Public Use
  Company Number: GB-MYLANLABS-2022M1019330

PATIENT
  Sex: Female
  Weight: 39.3 kg

DRUGS (22)
  1. CLOZARIL [Suspect]
     Active Substance: CLOZAPINE
     Indication: Schizophrenia
     Dosage: 37.5 MILLIGRAM, BID (STARTED TITRATION FROM 12.5 MILLIGRAM DAILY)
     Route: 048
     Dates: start: 20220313
  2. CLOZARIL [Suspect]
     Active Substance: CLOZAPINE
     Indication: Major depression
  3. CLOZARIL [Suspect]
     Active Substance: CLOZAPINE
     Indication: Catatonia
  4. MIRTAZAPINE [Concomitant]
     Active Substance: MIRTAZAPINE
     Indication: Depression
     Dosage: 45 MILLIGRAM, PM
     Route: 048
  5. APIXABAN [Concomitant]
     Active Substance: APIXABAN
     Indication: Prophylaxis
     Dosage: 2.5 MILLIGRAM, BID
     Route: 048
     Dates: start: 20210916
  6. FRESUBIN [Concomitant]
     Active Substance: AMINO ACIDS\DEXTROSE\ELECTROLYTES NOS\SOYBEAN OIL\VITAMINS
     Indication: Supplementation therapy
     Dosage: 40 MILLILITER, BID
     Route: 048
     Dates: start: 20211207
  7. FRESUBIN [Concomitant]
     Active Substance: AMINO ACIDS\DEXTROSE\ELECTROLYTES NOS\SOYBEAN OIL\VITAMINS
     Dosage: 45 MILLILITER, QD
     Route: 048
     Dates: start: 20210928
  8. FRESUBIN [Concomitant]
     Active Substance: AMINO ACIDS\DEXTROSE\ELECTROLYTES NOS\SOYBEAN OIL\VITAMINS
     Dosage: 40 MILLILITER, BID
     Route: 048
     Dates: start: 20220109
  9. OLANZAPINE [Concomitant]
     Active Substance: OLANZAPINE
     Dosage: UPTO 15 MILLIGRAM
     Route: 048
     Dates: start: 20201210, end: 20210105
  10. OLANZAPINE [Concomitant]
     Active Substance: OLANZAPINE
     Dosage: UPTO 15 MILLIGRAM
     Route: 048
     Dates: start: 20210722, end: 20210903
  11. RISPERIDONE [Concomitant]
     Active Substance: RISPERIDONE
     Dosage: 1 MILLIGRAM, BID
     Route: 048
     Dates: start: 20210106, end: 20210301
  12. ARIPIPRAZOLE [Concomitant]
     Active Substance: ARIPIPRAZOLE
     Dosage: UPTO 5 MILLIGRAM
     Route: 048
     Dates: start: 20210301, end: 20210310
  13. LURASIDONE [Concomitant]
     Active Substance: LURASIDONE
     Dosage: UPTO 148 MG
     Route: 048
     Dates: start: 20210318, end: 20220128
  14. FLUPENTIXOL [Concomitant]
     Active Substance: FLUPENTIXOL
     Dosage: UPTO 100 MG FORTNIGHTLY ROM
     Dates: start: 20211104, end: 20220313
  15. SENNOSIDES A AND B [Concomitant]
     Active Substance: SENNOSIDES A AND B
     Indication: Constipation
     Dosage: 15 MILLIGRAM, BID
     Route: 048
     Dates: start: 20211207
  16. FRESUBIN [Concomitant]
     Active Substance: AMINO ACIDS\DEXTROSE\ELECTROLYTES NOS\SOYBEAN OIL\VITAMINS
     Indication: Supplementation therapy
     Dosage: 30 MILLILITER, BID
     Route: 048
     Dates: start: 20220109
  17. LEVOTHYROXINE [Concomitant]
     Active Substance: LEVOTHYROXINE
     Indication: Hypothyroidism
     Dosage: 100 MICROGRAM, QD
     Route: 048
  18. LANSOPRAZOLE [Concomitant]
     Active Substance: LANSOPRAZOLE
     Dosage: 15 MILLIGRAM, QD
     Route: 048
  19. SERTRALINE [Concomitant]
     Active Substance: SERTRALINE HYDROCHLORIDE
     Indication: Prophylaxis
     Dosage: 200 MILLIGRAM, QD
     Dates: start: 20210916
  20. DOCUSATE SODIUM [Concomitant]
     Active Substance: DOCUSATE SODIUM
     Indication: Supplementation therapy
     Dosage: 100 MILLIGRAM, QD
     Route: 048
     Dates: start: 20211207
  21. DOCUSATE SODIUM [Concomitant]
     Active Substance: DOCUSATE SODIUM
     Indication: Constipation
     Dosage: 200 MILLIGRAM, PM
     Route: 048
     Dates: start: 20211207
  22. LORAZEPAM [Concomitant]
     Active Substance: LORAZEPAM
     Indication: Catatonia
     Dosage: 1 MILLIGRAM, PM,QDS
     Route: 048
     Dates: start: 20210310

REACTIONS (1)
  - Off label use [Recovering/Resolving]
